FAERS Safety Report 7515199-8 (Version None)
Quarter: 2011Q2

REPORT INFORMATION
  Report Type: 
  Country: None (occurrence: None)
  Receive Date: 20110601
  Receipt Date: 20110520
  Transmission Date: 20111010
  Serious: Yes (Hospitalization)
  Sender: FDA-Public Use
  Company Number: US-MYLANLABS-2011S1010660

PATIENT
  Age: 55 Year
  Sex: Female

DRUGS (4)
  1. FENTANYL-100 [Suspect]
     Dosage: Q3D
     Route: 062
     Dates: start: 20110506
  2. AMITRIPTYLINE HCL [Concomitant]
     Indication: INSOMNIA
     Route: 048
  3. FENTANYL-100 [Suspect]
     Indication: PAIN
     Dosage: Q3D
     Route: 062
     Dates: start: 20060101, end: 20110506
  4. XANAX [Concomitant]
     Indication: INSOMNIA
     Route: 048

REACTIONS (2)
  - DIZZINESS [None]
  - LOSS OF CONSCIOUSNESS [None]
